FAERS Safety Report 20230602 (Version 2)
Quarter: 2022Q3

REPORT INFORMATION
  Report Type: Spontaneous
  Country: US (occurrence: US)
  Receive Date: 20211227
  Receipt Date: 20220815
  Transmission Date: 20221027
  Serious: Yes (Other)
  Sender: FDA-Public Use
  Company Number: US-GILEAD-2021-0562338

PATIENT
  Age: 51 Year
  Sex: Male
  Weight: 115.19 kg

DRUGS (41)
  1. VIREAD [Suspect]
     Active Substance: TENOFOVIR DISOPROXIL FUMARATE
     Indication: HIV infection
     Dosage: UNK
     Route: 048
     Dates: start: 2001
  2. COMPLERA [Suspect]
     Active Substance: EMTRICITABINE\RILPIVIRINE HYDROCHLORIDE\TENOFOVIR DISOPROXIL FUMARATE
     Indication: HIV infection
     Dosage: UNK
     Route: 048
     Dates: start: 2001
  3. COMPLERA [Suspect]
     Active Substance: EMTRICITABINE\RILPIVIRINE HYDROCHLORIDE\TENOFOVIR DISOPROXIL FUMARATE
     Dosage: UNK
     Route: 065
  4. STRIBILD [Suspect]
     Active Substance: COBICISTAT\ELVITEGRAVIR\EMTRICITABINE\TENOFOVIR DISOPROXIL FUMARATE
     Indication: HIV infection
     Dosage: UNK
     Route: 048
     Dates: start: 2001
  5. STRIBILD [Suspect]
     Active Substance: COBICISTAT\ELVITEGRAVIR\EMTRICITABINE\TENOFOVIR DISOPROXIL FUMARATE
     Dosage: UNK
     Route: 065
     Dates: start: 2012
  6. TRUVADA [Suspect]
     Active Substance: EMTRICITABINE\TENOFOVIR DISOPROXIL FUMARATE
     Indication: HIV infection
     Dosage: UNK
     Route: 048
     Dates: start: 2001
  7. TRUVADA [Suspect]
     Active Substance: EMTRICITABINE\TENOFOVIR DISOPROXIL FUMARATE
     Dosage: UNK
     Route: 065
     Dates: end: 2016
  8. BIKTARVY [Concomitant]
     Active Substance: BICTEGRAVIR SODIUM\EMTRICITABINE\TENOFOVIR ALAFENAMIDE FUMARATE
  9. DESCOVY [Concomitant]
     Active Substance: EMTRICITABINE\TENOFOVIR ALAFENAMIDE FUMARATE
  10. COMBIVIR [Concomitant]
     Active Substance: LAMIVUDINE\ZIDOVUDINE
  11. CRIXIVAN [Concomitant]
     Active Substance: INDINAVIR SULFATE
  12. EDURANT [Concomitant]
     Active Substance: RILPIVIRINE HYDROCHLORIDE
  13. EPIVIR [Concomitant]
     Active Substance: LAMIVUDINE
  14. EPZICOM [Concomitant]
     Active Substance: ABACAVIR SULFATE\LAMIVUDINE
  15. KALETRA [Concomitant]
     Active Substance: LOPINAVIR\RITONAVIR
  16. LEXIVA [Concomitant]
     Active Substance: FOSAMPRENAVIR CALCIUM
  17. NORVIR [Concomitant]
     Active Substance: RITONAVIR
  18. PREZCOBIX [Concomitant]
     Active Substance: COBICISTAT\DARUNAVIR ETHANOLATE
  19. PREZISTA [Concomitant]
     Active Substance: DARUNAVIR ETHANOLATE
  20. RETROVIR [Concomitant]
     Active Substance: ZIDOVUDINE
  21. REYATAZ [Concomitant]
     Active Substance: ATAZANAVIR SULFATE
  22. SUSTIVA [Concomitant]
     Active Substance: EFAVIRENZ
  23. SYMTUZA [Concomitant]
     Active Substance: COBICISTAT\DARUNAVIR\EMTRICITABINE\TENOFOVIR ALAFENAMIDE
  24. TIVICAY [Concomitant]
     Active Substance: DOLUTEGRAVIR SODIUM
  25. VIDEX [Concomitant]
     Active Substance: DIDANOSINE
  26. VIRACEPT [Concomitant]
     Active Substance: NELFINAVIR MESYLATE
  27. VIRAMUNE [Concomitant]
     Active Substance: NEVIRAPINE
  28. ZIAGEN [Concomitant]
     Active Substance: ABACAVIR SULFATE
  29. ZERIT [Concomitant]
     Active Substance: STAVUDINE
  30. SUDAFED 12 HOUR [Concomitant]
     Active Substance: PSEUDOEPHEDRINE HYDROCHLORIDE
  31. SODIUM CHLORIDE [Concomitant]
     Active Substance: SODIUM CHLORIDE
  32. AMLODIPINE [Concomitant]
     Active Substance: AMLODIPINE BESYLATE
  33. KLONOPIN [Concomitant]
     Active Substance: CLONAZEPAM
  34. AZITHROMYCIN [Concomitant]
     Active Substance: AZITHROMYCIN
  35. BACTRIM [Concomitant]
     Active Substance: SULFAMETHOXAZOLE\TRIMETHOPRIM
  36. MUPIROCIN [Concomitant]
     Active Substance: MUPIROCIN
  37. ZANTAC [Concomitant]
     Active Substance: RANITIDINE HYDROCHLORIDE
  38. DEXILANT [Concomitant]
     Active Substance: DEXLANSOPRAZOLE
  39. LANSOPRAZOLE [Concomitant]
     Active Substance: LANSOPRAZOLE
  40. FAMOTIDINE [Concomitant]
     Active Substance: FAMOTIDINE
  41. ZOLOFT [Concomitant]
     Active Substance: SERTRALINE HYDROCHLORIDE

REACTIONS (12)
  - Chronic kidney disease [Unknown]
  - Renal injury [Unknown]
  - Chronic kidney disease [Not Recovered/Not Resolved]
  - Pain [Not Recovered/Not Resolved]
  - Emotional distress [Not Recovered/Not Resolved]
  - Anxiety [Not Recovered/Not Resolved]
  - Anhedonia [Not Recovered/Not Resolved]
  - Back pain [Not Recovered/Not Resolved]
  - Pollakiuria [Not Recovered/Not Resolved]
  - Oedema peripheral [Not Recovered/Not Resolved]
  - Gait disturbance [Not Recovered/Not Resolved]
  - Asthenia [Not Recovered/Not Resolved]

NARRATIVE: CASE EVENT DATE: 20161201
